FAERS Safety Report 16575424 (Version 1)
Quarter: 2019Q3

REPORT INFORMATION
  Report Type: Spontaneous
  Country: BR (occurrence: BR)
  Receive Date: 20190716
  Receipt Date: 20190716
  Transmission Date: 20191004
  Serious: Yes (Hospitalization)
  Sender: FDA-Public Use
  Company Number: BR-SUN PHARMACEUTICAL INDUSTRIES LTD-2019R1-203273

PATIENT
  Age: 39 Year
  Sex: Female

DRUGS (4)
  1. DIGOXIN. [Suspect]
     Active Substance: DIGOXIN
     Indication: TACHYCARDIA FOETAL
     Dosage: 2.0 MILLIGRAM, DAILY
     Route: 048
  2. DIGOXIN. [Suspect]
     Active Substance: DIGOXIN
     Dosage: REDUCED EVERY 24 HRS TO 1.5 MG AND 1.0 MG/DAY
     Route: 048
  3. DIGOXIN. [Suspect]
     Active Substance: DIGOXIN
     Dosage: 0.25 MILLIGRAM, DAILY
     Route: 048
  4. SOTALOL. [Suspect]
     Active Substance: SOTALOL
     Indication: TACHYCARDIA FOETAL
     Dosage: 320 MILLIGRAM, DAILY
     Route: 048

REACTIONS (2)
  - Electrocardiogram QT prolonged [Recovered/Resolved]
  - Exposure during pregnancy [Unknown]
